FAERS Safety Report 7722006-7 (Version None)
Quarter: 2011Q3

REPORT INFORMATION
  Report Type: 
  Country: None (occurrence: None)
  Receive Date: 20110831
  Receipt Date: 20110823
  Transmission Date: 20111222
  Serious: Yes (Hospitalization)
  Sender: FDA-Public Use
  Company Number: CO-GENZYME-CERZ-1002226

PATIENT
  Sex: Male
  Weight: 18 kg

DRUGS (1)
  1. CEREZYME [Suspect]
     Indication: GAUCHER'S DISEASE
     Dosage: 133 U/KG, Q4W
     Route: 042
     Dates: start: 20091023

REACTIONS (1)
  - INFLUENZA [None]
